FAERS Safety Report 7927687-0 (Version None)
Quarter: 2011Q4

REPORT INFORMATION
  Report Type: 
  Country: None (occurrence: None)
  Receive Date: 20111118
  Receipt Date: 20111108
  Transmission Date: 20120403
  Serious: Yes (Death, Life-Threatening, Hospitalization, Other)
  Sender: FDA-Public Use
  Company Number: US-ACTELION-A-NJ2011-56819

PATIENT

DRUGS (4)
  1. COUMADIN [Concomitant]
  2. OXYGEN [Concomitant]
  3. SILDENAFIL [Concomitant]
  4. EPOPROSTENOL SODIUM [Suspect]
     Indication: PULMONARY ARTERIAL HYPERTENSION
     Dosage: 30 NG/KG, PER MIN
     Route: 041
     Dates: start: 20110812, end: 20111106

REACTIONS (1)
  - RESPIRATORY FAILURE [None]
